FAERS Safety Report 8920678 (Version 1)
Quarter: 2012Q4

REPORT INFORMATION
  Report Type: 
  Country: BE (occurrence: BE)
  Receive Date: 20121122
  Receipt Date: 20121122
  Transmission Date: 20130627
  Serious: Yes (Other)
  Sender: FDA-Public Use
  Company Number: BE-AMGEN-BELSP2011005826

PATIENT
  Age: 65 Year
  Sex: Female

DRUGS (8)
  1. NPLATE [Suspect]
     Indication: IDIOPATHIC THROMBOCYTOPENIC PURPURA
     Dosage: 0.5 ml, UNK
     Route: 058
  2. NPLATE [Suspect]
     Dosage: UNK UNK, qwk
     Route: 058
     Dates: start: 2010, end: 201209
  3. NEORAL [Concomitant]
     Dosage: 100 mg, UNK
  4. NEORAL [Concomitant]
     Dosage: 75 mg, qd
  5. NEORAL [Concomitant]
     Dosage: 25 mg, UNK
     Dates: start: 20110309
  6. REVOLADE [Concomitant]
     Dosage: 25 mg, bid
  7. MEDROL [Concomitant]
     Dosage: 8 mg, UNK
  8. PROGRAFT [Concomitant]
     Dosage: UNK

REACTIONS (1)
  - Therapeutic response decreased [Not Recovered/Not Resolved]
